FAERS Safety Report 14933221 (Version 2)
Quarter: 2018Q2

REPORT INFORMATION
  Report Type: Spontaneous
  Country: BE (occurrence: BE)
  Receive Date: 20180524
  Receipt Date: 20180625
  Transmission Date: 20180711
  Serious: Yes (Other)
  Sender: FDA-Public Use
  Company Number: PHHY2018BE001814

PATIENT
  Sex: Male

DRUGS (1)
  1. GILENYA [Suspect]
     Active Substance: FINGOLIMOD HYDROCHLORIDE
     Indication: MULTIPLE SCLEROSIS
     Dosage: UNK, 3 DAYS/4 DAYS
     Route: 048
     Dates: start: 201609

REACTIONS (3)
  - JC polyomavirus test positive [Not Recovered/Not Resolved]
  - Lymphocyte count decreased [Recovered/Resolved]
  - Prescribed underdose [Unknown]
